FAERS Safety Report 14253430 (Version 4)
Quarter: 2018Q1

REPORT INFORMATION
  Report Type: Report from Study
  Country: None (occurrence: US)
  Receive Date: 20171206
  Receipt Date: 20180312
  Transmission Date: 20180508
  Serious: Yes (Other)
  Sender: FDA-Public Use
  Company Number: US-ABBVIE-17K-163-1897767-00

PATIENT
  Sex: Female
  Weight: 75.82 kg

DRUGS (12)
  1. HUMIRA [Suspect]
     Active Substance: ADALIMUMAB
     Indication: RHEUMATOID ARTHRITIS
     Route: 058
     Dates: start: 2011, end: 201405
  2. CALCIUM [Concomitant]
     Active Substance: CALCIUM
     Indication: MINERAL SUPPLEMENTATION
  3. HUMIRA [Suspect]
     Active Substance: ADALIMUMAB
     Route: 058
     Dates: start: 201411, end: 2016
  4. LISINOPRIL. [Concomitant]
     Active Substance: LISINOPRIL
     Indication: HYPERTENSION
  5. FISH OIL [Concomitant]
     Active Substance: FISH OIL
     Indication: SUPPLEMENTATION THERAPY
  6. VITAMIN C [Concomitant]
     Active Substance: ASCORBIC ACID
     Indication: VITAMIN SUPPLEMENTATION
  7. ZYRTEC [Concomitant]
     Active Substance: CETIRIZINE HYDROCHLORIDE
     Indication: HYPERSENSITIVITY
  8. HUMIRA [Suspect]
     Active Substance: ADALIMUMAB
     Route: 058
     Dates: start: 2016
  9. COQ 10 [Concomitant]
     Active Substance: UBIDECARENONE
     Indication: SUPPLEMENTATION THERAPY
  10. L METHYLFOLATE [Concomitant]
     Indication: CONGENITAL ANOMALY
  11. SINGULAIR [Concomitant]
     Active Substance: MONTELUKAST SODIUM
     Indication: HYPERSENSITIVITY
  12. ADVAIR HFA [Concomitant]
     Active Substance: FLUTICASONE PROPIONATE\SALMETEROL XINAFOATE
     Indication: ASTHMA

REACTIONS (26)
  - Asthma [Not Recovered/Not Resolved]
  - Therapeutic response shortened [Not Recovered/Not Resolved]
  - Nasal congestion [Recovering/Resolving]
  - Hypersensitivity [Not Recovered/Not Resolved]
  - Device issue [Unknown]
  - Sinusitis [Recovering/Resolving]
  - Post procedural infection [Recovering/Resolving]
  - Injection site pain [Not Recovered/Not Resolved]
  - Device issue [Not Recovered/Not Resolved]
  - Musculoskeletal stiffness [Unknown]
  - Dyspnoea [Recovering/Resolving]
  - Viral infection [Recovering/Resolving]
  - Muscular weakness [Not Recovered/Not Resolved]
  - Peripheral swelling [Unknown]
  - Sensitivity to weather change [Unknown]
  - Seasonal allergy [Not Recovered/Not Resolved]
  - Nasal discomfort [Not Recovered/Not Resolved]
  - Pain in extremity [Recovering/Resolving]
  - Sneezing [Not Recovered/Not Resolved]
  - Post procedural complication [Recovering/Resolving]
  - Nasal congestion [Not Recovered/Not Resolved]
  - Nasal oedema [Recovering/Resolving]
  - Nocturnal dyspnoea [Recovering/Resolving]
  - Cerebrovascular accident [Not Recovered/Not Resolved]
  - Rheumatoid arthritis [Not Recovered/Not Resolved]
  - Paraesthesia [Not Recovered/Not Resolved]

NARRATIVE: CASE EVENT DATE: 2011
